FAERS Safety Report 11746454 (Version 1)
Quarter: 2015Q4

REPORT INFORMATION
  Report Type: Spontaneous
  Country: US (occurrence: US)
  Receive Date: 20151117
  Receipt Date: 20151117
  Transmission Date: 20160304
  Serious: Yes (Hospitalization)
  Sender: FDA-Public Use
  Company Number: US-MYLANLABS-2015M1039477

PATIENT

DRUGS (18)
  1. ROSUVASTATIN [Concomitant]
     Active Substance: ROSUVASTATIN
     Indication: TYPE IIA HYPERLIPIDAEMIA
     Dosage: 40 MG/DAY
     Route: 065
  2. EZETIMIBE. [Concomitant]
     Active Substance: EZETIMIBE
     Indication: TYPE IIA HYPERLIPIDAEMIA
     Dosage: 10 MG/DAY
     Route: 065
  3. LOMITAPIDE [Interacting]
     Active Substance: LOMITAPIDE MESYLATE
     Route: 065
     Dates: start: 200803
  4. METOPROLOL TARTRATE. [Concomitant]
     Active Substance: METOPROLOL TARTRATE
     Indication: PRODUCT USED FOR UNKNOWN INDICATION
     Dosage: 100 MG/DAY
     Route: 065
  5. LOMITAPIDE [Interacting]
     Active Substance: LOMITAPIDE MESYLATE
     Route: 065
     Dates: start: 200803
  6. WARFARIN [Suspect]
     Active Substance: WARFARIN
     Indication: ANTICOAGULANT THERAPY
     Dosage: 4 MG/DAY
     Route: 065
  7. LOMITAPIDE [Interacting]
     Active Substance: LOMITAPIDE MESYLATE
     Route: 065
     Dates: start: 200803
  8. FERROUS SULFATE [Concomitant]
     Active Substance: FERROUS SULFATE\FERROUS SULFATE, DRIED
     Indication: PRODUCT USED FOR UNKNOWN INDICATION
     Dosage: 325 MG/DAY
     Route: 065
  9. IBUPROFEN. [Concomitant]
     Active Substance: IBUPROFEN
     Indication: NASOPHARYNGITIS
     Route: 065
  10. ROBITUSSIN COUGH AND COLD CF MAX [Suspect]
     Active Substance: DEXTROMETHORPHAN HYDROBROMIDE\GUAIFENESIN\PHENYLEPHRINE HYDROCHLORIDE
     Indication: NASOPHARYNGITIS
     Route: 065
  11. NYQUIL HOT THERAPY [Suspect]
     Active Substance: ACETAMINOPHEN\DEXTROMETHORPHAN\DOXYLAMINE SUCCINATE\PSEUDOEPHEDRINE HYDROCHLORIDE
     Indication: NASOPHARYNGITIS
     Route: 065
  12. ASPIRIN                            /00002701/ [Concomitant]
     Active Substance: ASPIRIN
     Indication: PRODUCT USED FOR UNKNOWN INDICATION
     Dosage: 81 MG/DAY
     Route: 065
  13. GUAIFENESIN. [Concomitant]
     Active Substance: GUAIFENESIN
     Indication: NASOPHARYNGITIS
     Route: 065
  14. LOMITAPIDE [Interacting]
     Active Substance: LOMITAPIDE MESYLATE
     Indication: TYPE IIA HYPERLIPIDAEMIA
     Dosage: 0.03 MG/KG/DAY, TITRATED EVERY 4 WEEKS UP TO 1 MG/KG/DAY
     Route: 065
     Dates: start: 2003
  15. LOMITAPIDE [Interacting]
     Active Substance: LOMITAPIDE MESYLATE
     Route: 065
     Dates: start: 200803
  16. LOMITAPIDE [Interacting]
     Active Substance: LOMITAPIDE MESYLATE
     Route: 065
     Dates: start: 200803
  17. COLESEVELAM [Concomitant]
     Active Substance: COLESEVELAM
     Indication: TYPE IIA HYPERLIPIDAEMIA
     Dosage: 3750 MG/DAY
     Route: 065
  18. PROGESTERONE. [Concomitant]
     Active Substance: PROGESTERONE
     Indication: MENORRHAGIA
     Route: 065

REACTIONS (7)
  - Liver function test abnormal [Unknown]
  - Drug interaction [Unknown]
  - Subdural haematoma [Recovered/Resolved]
  - Haemorrhage [Unknown]
  - Cerebrovascular accident [Unknown]
  - Toxicity to various agents [None]
  - Nausea [Unknown]
